FAERS Safety Report 8822708 (Version 3)
Quarter: 2015Q2

REPORT INFORMATION
  Report Type: Report from Study
  Country: US (occurrence: US)
  Receive Date: 20121003
  Receipt Date: 20150424
  Transmission Date: 20150821
  Serious: Yes (Death, Hospitalization)
  Sender: FDA-Public Use
  Company Number: US-ROCHE-1123184

PATIENT
  Sex: Female

DRUGS (17)
  1. RITUXAN [Suspect]
     Active Substance: RITUXIMAB
     Indication: LYMPHOMA
     Dosage: NACL 0.9% 425 ML
     Route: 042
     Dates: start: 20100321
  2. RITUXAN [Suspect]
     Active Substance: RITUXIMAB
     Dosage: NACL 0.9% 500 ML
     Route: 042
     Dates: start: 20100402
  3. ADRIAMYCIN [Concomitant]
     Active Substance: DOXORUBICIN HYDROCHLORIDE
     Route: 042
  4. ZOFRAN [Concomitant]
     Active Substance: ONDANSETRON HYDROCHLORIDE
     Route: 042
  5. RITUXAN [Suspect]
     Active Substance: RITUXIMAB
     Dosage: 23/APR/2010 AND 14/MAY/2010
     Route: 042
  6. BENADRYL [Concomitant]
     Active Substance: DIPHENHYDRAMINE HYDROCHLORIDE
     Route: 042
  7. RITUXAN [Suspect]
     Active Substance: RITUXIMAB
     Route: 042
     Dates: start: 20100326
  8. VINCRISTINE [Concomitant]
     Active Substance: VINCRISTINE
     Route: 042
  9. ATIVAN [Concomitant]
     Active Substance: LORAZEPAM
     Route: 042
  10. CYTOXAN [Concomitant]
     Active Substance: CYCLOPHOSPHAMIDE
     Route: 042
  11. VINCRISTINE [Concomitant]
     Active Substance: VINCRISTINE
     Route: 042
  12. RITUXAN [Suspect]
     Active Substance: RITUXIMAB
     Indication: LYMPHOMA
     Dosage: IN  SODIUM CHLORIDE 0.9% 100 ML
     Route: 042
     Dates: start: 20100320
  13. RITUXAN [Suspect]
     Active Substance: RITUXIMAB
     Dosage: 25/JUN/2010 AND 19/JUL/2010
     Route: 042
  14. RITUXAN [Suspect]
     Active Substance: RITUXIMAB
     Route: 042
     Dates: start: 20100604
  15. TYLENOL [Concomitant]
     Active Substance: ACETAMINOPHEN
     Route: 048
  16. CYTOXAN [Concomitant]
     Active Substance: CYCLOPHOSPHAMIDE
     Route: 042
  17. ADRIAMYCIN [Concomitant]
     Active Substance: DOXORUBICIN HYDROCHLORIDE
     Route: 042

REACTIONS (10)
  - Haemorrhage [Unknown]
  - Blood potassium abnormal [Unknown]
  - Peripheral swelling [Unknown]
  - Pain in extremity [Unknown]
  - Blood creatinine abnormal [Unknown]
  - Somnolence [Unknown]
  - Restlessness [Unknown]
  - Death [Fatal]
  - Decreased appetite [Unknown]
  - Gait disturbance [Unknown]
